FAERS Safety Report 9978291 (Version 1)
Quarter: 2014Q1

REPORT INFORMATION
  Report Type: Spontaneous
  Country: US (occurrence: US)
  Receive Date: 20140306
  Receipt Date: 20140306
  Transmission Date: 20141002
  Serious: Yes (Death)
  Sender: FDA-Public Use
  Company Number: US-BANPHARM-20142395

PATIENT
  Age: 42 Year
  Sex: Male

DRUGS (6)
  1. DIPHENHYDRAMINE UNKNOWN PRODUCT [Suspect]
     Route: 048
  2. 7-AMINOCLONAZEPM [Suspect]
  3. FENTANYL [Suspect]
  4. ETHANOL [Suspect]
  5. METOPROLOL [Suspect]
  6. CAFFEINE [Suspect]

REACTIONS (2)
  - Death [Fatal]
  - Completed suicide [Fatal]
